FAERS Safety Report 8236011-8 (Version None)
Quarter: 2012Q1

REPORT INFORMATION
  Report Type: 
  Country: None (occurrence: None)
  Receive Date: 20120326
  Receipt Date: 20120315
  Transmission Date: 20120608
  Serious: Yes (Other)
  Sender: FDA-Public Use
  Company Number: US-ASTRAZENECA-2012SE18194

PATIENT
  Age: 60 Year
  Sex: Female

DRUGS (1)
  1. ZOMIG [Suspect]
     Route: 048

REACTIONS (4)
  - HEAD INJURY [None]
  - SENSATION OF PRESSURE [None]
  - ROAD TRAFFIC ACCIDENT [None]
  - HEADACHE [None]
